FAERS Safety Report 8377614-X (Version None)
Quarter: 2012Q2

REPORT INFORMATION
  Report Type: 
  Country: None (occurrence: None)
  Receive Date: 20120522
  Receipt Date: 20120514
  Transmission Date: 20120825
  Serious: Yes (Other)
  Sender: FDA-Public Use
  Company Number: US-PFIZER INC-2012067795

PATIENT
  Sex: Female
  Weight: 61.224 kg

DRUGS (4)
  1. DETROL LA [Suspect]
     Dosage: 4 MG, DAILY
     Route: 048
     Dates: start: 20120201, end: 20120401
  2. DETROL LA [Suspect]
     Indication: MICTURITION DISORDER
     Dosage: 2 MG, 1X/DAY
     Route: 048
  3. DETROL LA [Suspect]
     Dosage: 4 MG, 1X/DAY
     Route: 048
     Dates: start: 20120101, end: 20120101
  4. DETROL LA [Suspect]
     Indication: URINARY INCONTINENCE
     Dosage: 4 MG, 1X/DAY
     Route: 048

REACTIONS (11)
  - MEMORY IMPAIRMENT [None]
  - POLLAKIURIA [None]
  - NAUSEA [None]
  - VERTIGO [None]
  - BLOOD PRESSURE FLUCTUATION [None]
  - DRUG INEFFECTIVE [None]
  - MALAISE [None]
  - DYSGEUSIA [None]
  - ABDOMINAL DISCOMFORT [None]
  - CONFUSIONAL STATE [None]
  - DIZZINESS [None]
